FAERS Safety Report 9839478 (Version 3)
Quarter: 2014Q1

REPORT INFORMATION
  Report Type: Report from Study
  Country: AR (occurrence: AR)
  Receive Date: 20140124
  Receipt Date: 20140129
  Transmission Date: 20141002
  Serious: Yes (Other)
  Sender: FDA-Public Use
  Company Number: AR-ROCHE-1320478

PATIENT
  Sex: Female

DRUGS (7)
  1. RANIBIZUMAB [Suspect]
     Indication: RETINAL VASCULAR THROMBOSIS
     Dosage: EVERY MONTH
     Route: 050
     Dates: start: 201208
  2. RANIBIZUMAB [Suspect]
     Route: 050
     Dates: start: 201209
  3. RANIBIZUMAB [Suspect]
     Route: 050
     Dates: start: 201210
  4. RANIBIZUMAB [Suspect]
     Route: 065
  5. RANIBIZUMAB [Suspect]
     Route: 065
     Dates: start: 201207
  6. RANIBIZUMAB [Suspect]
     Route: 050
     Dates: start: 201306
  7. RANIBIZUMAB [Suspect]
     Route: 050
     Dates: start: 20130918

REACTIONS (3)
  - Vision blurred [Recovering/Resolving]
  - Retinal detachment [Recovering/Resolving]
  - Retinal vascular thrombosis [Recovering/Resolving]
